FAERS Safety Report 6014153-5 (Version None)
Quarter: 2008Q4

REPORT INFORMATION
  Report Type: 
  Country: None (occurrence: None)
  Receive Date: 20081219
  Receipt Date: 20080114
  Transmission Date: 20090506
  Serious: No
  Sender: FDA-Public Use
  Company Number: A0703902A

PATIENT
  Sex: Male

DRUGS (2)
  1. AVODART [Suspect]
     Indication: PROSTATIC DISORDER
     Dosage: .5MG UNKNOWN
     Route: 065
     Dates: start: 20070101
  2. FLOMAX [Concomitant]
     Indication: PROSTATIC DISORDER
     Dosage: .4MG TWICE PER DAY
     Route: 065
     Dates: start: 19960101

REACTIONS (1)
  - DRUG INEFFECTIVE [None]
